FAERS Safety Report 20007606 (Version 2)
Quarter: 2021Q4

REPORT INFORMATION
  Report Type: Spontaneous
  Country: US (occurrence: US)
  Receive Date: 20211028
  Receipt Date: 20211223
  Transmission Date: 20220303
  Serious: Yes (Hospitalization)
  Sender: FDA-Public Use
  Company Number: US-PFIZER INC-2021599241

PATIENT
  Age: 69 Year
  Sex: Female
  Weight: 116.55 kg

DRUGS (2)
  1. LYRICA [Suspect]
     Active Substance: PREGABALIN
     Indication: Neuropathy peripheral
     Dosage: 300 TWICE A DAY
  2. LYRICA [Suspect]
     Active Substance: PREGABALIN
     Indication: Diabetic neuropathy
     Dosage: 300 MG
     Route: 048

REACTIONS (2)
  - Fall [Recovering/Resolving]
  - Compression fracture [Recovering/Resolving]

NARRATIVE: CASE EVENT DATE: 20210101
